FAERS Safety Report 16456307 (Version 1)
Quarter: 2019Q3

REPORT INFORMATION
  Report Type: Spontaneous
  Country: US (occurrence: US)
  Receive Date: 20190619
  Receipt Date: 20190619
  Transmission Date: 20191004
  Serious: Yes (Other)
  Sender: FDA-Public Use
  Company Number: None

PATIENT
  Age: 68 Year
  Sex: Female
  Weight: 45 kg

DRUGS (9)
  1. ALLEGRA-D [Concomitant]
     Active Substance: FEXOFENADINE\PSEUDOEPHEDRINE
  2. LETROZOLE. [Concomitant]
     Active Substance: LETROZOLE
  3. PANTOPRAZOLE [Concomitant]
     Active Substance: PANTOPRAZOLE
  4. FENTANYL. [Concomitant]
     Active Substance: FENTANYL
  5. IBRANCE [Suspect]
     Active Substance: PALBOCICLIB
     Indication: BREAST CANCER FEMALE
     Route: 048
     Dates: start: 20190103
  6. IBUPROFEN. [Concomitant]
     Active Substance: IBUPROFEN
  7. ACETAMINOPHEN-CODEINE #3 [Concomitant]
     Active Substance: ACETAMINOPHEN\CODEINE PHOSPHATE
  8. BETAMETHASONE DIP TOPICAL [Concomitant]
  9. DIPHENHYDRAMINE-APAP [Concomitant]

REACTIONS (1)
  - Chills [None]

NARRATIVE: CASE EVENT DATE: 20190619
